FAERS Safety Report 7860445-4 (Version None)
Quarter: 2011Q4

REPORT INFORMATION
  Report Type: 
  Country: None (occurrence: None)
  Receive Date: 20111027
  Receipt Date: 20111020
  Transmission Date: 20120403
  Serious: Yes (Hospitalization)
  Sender: FDA-Public Use
  Company Number: PHHY2011NL92724

PATIENT
  Sex: Male
  Weight: 95 kg

DRUGS (1)
  1. FLUVASTATIN SODIUM [Suspect]
     Dosage: 80 MG, UNK
     Route: 048
     Dates: start: 20011001

REACTIONS (4)
  - MYALGIA [None]
  - MUSCLE SPASMS [None]
  - MUSCLE RUPTURE [None]
  - TENDON RUPTURE [None]
